FAERS Safety Report 6178543-2 (Version None)
Quarter: 2009Q2

REPORT INFORMATION
  Report Type: 
  Country: None (occurrence: None)
  Receive Date: 20090504
  Receipt Date: 20090429
  Transmission Date: 20091009
  Serious: Yes (Death)
  Sender: FDA-Public Use
  Company Number: US-GILEAD-2009-0021711

PATIENT
  Sex: Male
  Weight: 97.61 kg

DRUGS (11)
  1. LETAIRIS [Suspect]
     Indication: PULMONARY ARTERIAL HYPERTENSION
     Route: 048
     Dates: start: 20090317, end: 20090401
  2. REVATIO [Concomitant]
  3. FUROSEMIDE [Concomitant]
  4. NORVASC [Concomitant]
  5. NADOLOL [Concomitant]
  6. NIFEREX-150 [Concomitant]
  7. IMODIUM A-D [Concomitant]
  8. ACIPHEX [Concomitant]
  9. AUGMENTIN '125' [Concomitant]
  10. MAALOX [Concomitant]
  11. MULTI-VITAMIN [Concomitant]

REACTIONS (1)
  - HEPATORENAL SYNDROME [None]
